FAERS Safety Report 6768815-2 (Version None)
Quarter: 2010Q2

REPORT INFORMATION
  Report Type: 
  Country: None (occurrence: None)
  Receive Date: 20100611
  Receipt Date: 20100525
  Transmission Date: 20101027
  Serious: Yes (Death)
  Sender: FDA-Public Use
  Company Number: 10-ADE-SU-0024-ACT

PATIENT

DRUGS (1)
  1. H P ACTHAR [Suspect]

REACTIONS (1)
  - NEONATAL INFECTION [None]
